FAERS Safety Report 22625824 (Version 1)
Quarter: 2023Q2

REPORT INFORMATION
  Report Type: Spontaneous
  Country: US (occurrence: None)
  Receive Date: 20230620
  Receipt Date: 20230620
  Transmission Date: 20230722
  Serious: Yes (Life-Threatening, Hospitalization, Disabling)
  Sender: FDA-Public Use
  Company Number: None

PATIENT
  Age: 52 Year
  Sex: Male
  Weight: 78.75 kg

DRUGS (5)
  1. QVAR REDIHALER [Suspect]
     Active Substance: BECLOMETHASONE DIPROPIONATE
     Indication: Respiratory distress
     Dosage: OTHER QUANTITY : 1 INHALATION(S);?FREQUENCY : TWICE A DAY;?
     Route: 055
     Dates: start: 20221121, end: 20221228
  2. INDOMETHACIN [Concomitant]
     Active Substance: INDOMETHACIN
  3. NARATRIPTAN [Concomitant]
     Active Substance: NARATRIPTAN HYDROCHLORIDE
  4. Vitamin D [Concomitant]
  5. LEXAPRO [Concomitant]
     Active Substance: ESCITALOPRAM OXALATE

REACTIONS (3)
  - Suicidal ideation [None]
  - Affective disorder [None]
  - Depression [None]

NARRATIVE: CASE EVENT DATE: 20221121
